FAERS Safety Report 20130233 (Version 1)
Quarter: 2021Q4

REPORT INFORMATION
  Report Type: Spontaneous
  Country: US (occurrence: None)
  Receive Date: 20211130
  Receipt Date: 20211130
  Transmission Date: 20220303
  Serious: No
  Sender: FDA-Public Use
  Company Number: None

PATIENT
  Sex: Female

DRUGS (1)
  1. VALACYCLOVIR [Suspect]
     Active Substance: VALACYCLOVIR HYDROCHLORIDE
     Indication: Herpes virus infection
     Dosage: OTHER QUANTITY : 1GM;?FREQUENCY : DAILY;?
     Route: 048
     Dates: start: 20210928

REACTIONS (2)
  - Rash [None]
  - Diarrhoea [None]
